FAERS Safety Report 9773144 (Version 3)
Quarter: 2014Q3

REPORT INFORMATION
  Report Type: Report from Study
  Country: US (occurrence: US)
  Receive Date: 20131219
  Receipt Date: 20140706
  Transmission Date: 20150326
  Serious: Yes (Death, Other)
  Sender: FDA-Public Use
  Company Number: US-ALEXION PHARMACEUTICALS INC.-A201304119

PATIENT

DRUGS (1)
  1. SOLIRIS [Suspect]
     Active Substance: ECULIZUMAB
     Indication: HAEMOLYTIC URAEMIC SYNDROME
     Dosage: 1200 MG, Q2W
     Route: 042
     Dates: start: 20130913

REACTIONS (16)
  - Cardiac pacemaker replacement [Unknown]
  - Cardiac failure congestive [Unknown]
  - Mitral valve incompetence [Unknown]
  - Carotid endarterectomy [Unknown]
  - Aortic aneurysm [Unknown]
  - General physical health deterioration [Unknown]
  - Transfusion [Unknown]
  - Emphysema [Unknown]
  - Chronic obstructive pulmonary disease [Unknown]
  - Confusional state [Unknown]
  - Platelet count decreased [Unknown]
  - Device lead damage [Unknown]
  - Weight increased [Unknown]
  - Death [Fatal]
  - Hypersomnia [Unknown]
  - Aortic valve replacement [Unknown]

NARRATIVE: CASE EVENT DATE: 201311
